FAERS Safety Report 14548049 (Version 3)
Quarter: 2020Q3

REPORT INFORMATION
  Report Type: Spontaneous
  Country: ES (occurrence: ES)
  Receive Date: 20180219
  Receipt Date: 20200719
  Transmission Date: 20201102
  Serious: Yes (Hospitalization, Other)
  Sender: FDA-Public Use
  Company Number: PHHY2018ES022031

PATIENT
  Age: 51 Year
  Sex: Male

DRUGS (6)
  1. AMIKACIN. [Suspect]
     Active Substance: AMIKACIN
     Indication: NOCARDIOSIS
     Dosage: 1000 MG, Q12H
     Route: 065
  2. AMIKACIN. [Suspect]
     Active Substance: AMIKACIN
     Indication: BRAIN ABSCESS
  3. CYCLOPHOSPHAMIDE. [Suspect]
     Active Substance: CYCLOPHOSPHAMIDE
     Indication: GRANULOMATOSIS WITH POLYANGIITIS
     Route: 065
  4. LINEZOLID. [Suspect]
     Active Substance: LINEZOLID
     Indication: NOCARDIOSIS
     Dosage: 600 MG, Q12H
     Route: 065
  5. LINEZOLID. [Suspect]
     Active Substance: LINEZOLID
     Indication: BRAIN ABSCESS
     Dosage: EMPIRICAL TREATMENT (AT UNSPECIFIED DOSE), LATER CHANGED TO DEFINITIVE TREATMENT
     Route: 065
  6. PYRIMETHAMINE [Suspect]
     Active Substance: PYRIMETHAMINE
     Indication: NOCARDIOSIS
     Route: 065

REACTIONS (4)
  - Nocardiosis [Recovered/Resolved]
  - Thrombocytopenia [Unknown]
  - Ototoxicity [Unknown]
  - Brain abscess [Recovered/Resolved]
